FAERS Safety Report 6073090-0 (Version None)
Quarter: 2009Q1

REPORT INFORMATION
  Report Type: 
  Country: None (occurrence: None)
  Receive Date: 20090211
  Receipt Date: 20090202
  Transmission Date: 20090719
  Serious: Yes (Other)
  Sender: FDA-Public Use
  Company Number: FR-JNJFOC-20090200389

PATIENT
  Sex: Female

DRUGS (5)
  1. RISPERDAL [Suspect]
     Indication: SCHIZOPHRENIA
     Route: 048
  2. LOXAPAC [Concomitant]
     Route: 048
  3. NEXIUM [Concomitant]
     Route: 048
  4. IMOVANE [Concomitant]
     Route: 048
  5. NOVONORM [Concomitant]
     Route: 048

REACTIONS (3)
  - HEPATITIS [None]
  - HYPOVITAMINOSIS [None]
  - LUNG DISORDER [None]
